FAERS Safety Report 16049164 (Version 2)
Quarter: 2019Q1

REPORT INFORMATION
  Report Type: Spontaneous
  Country: ES (occurrence: ES)
  Receive Date: 20190307
  Receipt Date: 20190320
  Transmission Date: 20190418
  Serious: Yes (Other)
  Sender: FDA-Public Use
  Company Number: ES-009507513-1903ESP001759

PATIENT
  Age: 72 Year
  Sex: Female

DRUGS (3)
  1. SIMVASTATIN. [Suspect]
     Active Substance: SIMVASTATIN
     Dosage: UNK
     Route: 048
  2. AMIODARONE [Interacting]
     Active Substance: AMIODARONE
     Dosage: UNK
  3. IBRANCE [Interacting]
     Active Substance: PALBOCICLIB
     Dosage: UNK

REACTIONS (3)
  - Hepatitis [Unknown]
  - Drug interaction [Unknown]
  - Rhabdomyolysis [Unknown]
